FAERS Safety Report 8458277 (Version 4)
Quarter: 2012Q4

REPORT INFORMATION
  Report Type: 
  Country: JP (occurrence: JP)
  Receive Date: 20120314
  Receipt Date: 20120918
  Transmission Date: 20130627
  Serious: Yes (Other)
  Sender: FDA-Public Use
  Company Number: PHHY2012JP021075

PATIENT
  Age: 81 Year
  Sex: Female
  Weight: 50 kg

DRUGS (8)
  1. ZOMETA [Suspect]
     Indication: METASTASES TO BONE
     Dosage: 4 mg (per administration)
     Route: 042
     Dates: start: 20100326, end: 20110812
  2. FEMARA [Concomitant]
     Indication: BREAST CANCER METASTATIC
     Dosage: 2.5 mg, UNK
     Route: 048
     Dates: start: 20101112, end: 20110125
  3. ARIMIDEX [Concomitant]
     Dosage: 1 mg, UNK
     Route: 048
     Dates: start: 20100326, end: 20100819
  4. AROMASIN [Concomitant]
     Dosage: 25 mg, UNK
     Route: 048
     Dates: start: 20100820, end: 20101111
  5. LOXOPROFEN [Concomitant]
     Dosage: 120 mg, UNK
     Route: 048
  6. SELBEX [Concomitant]
     Dosage: 200 mg, UNK
     Route: 048
  7. SANMEL [Concomitant]
     Dosage: 180 mg, UNK
     Route: 048
  8. OXYCONTIN [Concomitant]
     Dosage: 10 mg, UNK
     Route: 048
     Dates: start: 20110530

REACTIONS (9)
  - Osteonecrosis of jaw [Not Recovered/Not Resolved]
  - Tenderness [Unknown]
  - Exposed bone in jaw [Unknown]
  - Jaw disorder [Unknown]
  - Erythema [Not Recovered/Not Resolved]
  - Gingivitis [Unknown]
  - Psychosomatic disease [Unknown]
  - Toothache [Unknown]
  - Asthenia [Unknown]
